FAERS Safety Report 16156484 (Version 1)
Quarter: 2019Q2

REPORT INFORMATION
  Report Type: Spontaneous
  Country: US (occurrence: US)
  Receive Date: 20190404
  Receipt Date: 20190404
  Transmission Date: 20190711
  Serious: No
  Sender: FDA-Public Use
  Company Number: US-TEVA-2019-US-1025655

PATIENT
  Sex: Female

DRUGS (1)
  1. HYDROCODONE ACTAVIS (ACETAMINOPHEN\HYDROCODONE) [Suspect]
     Active Substance: ACETAMINOPHEN\HYDROCODONE
     Indication: NEURALGIA
     Dosage: FORM STRENGTH: (HYDROCODONE- 7.5 MG + ACETAMINOPHEN- 325 MG), 7.5-325 MG, TABLET THREE TIMES A DAY.
     Route: 065

REACTIONS (1)
  - Drug ineffective [Unknown]
